FAERS Safety Report 10527121 (Version 1)
Quarter: 2014Q4

REPORT INFORMATION
  Report Type: Spontaneous
  Country: US (occurrence: None)
  Receive Date: 20141016
  Receipt Date: 20141016
  Transmission Date: 20150528
  Serious: Yes (Other)
  Sender: FDA-Public Use
  Company Number: None

PATIENT
  Age: 48 Year
  Sex: Female
  Weight: 61.69 kg

DRUGS (2)
  1. BOTOX [Suspect]
     Active Substance: ONABOTULINUMTOXINA
     Indication: HEADACHE
     Dosage: 150MG DIVIDED IN 10 SHOTS ONCE DAILY INJECTED INTO SPINAL AREA
  2. BOTOX [Suspect]
     Active Substance: ONABOTULINUMTOXINA
     Indication: NECK PAIN
     Dosage: 150MG DIVIDED IN 10 SHOTS ONCE DAILY INJECTED INTO SPINAL AREA

REACTIONS (10)
  - Abdominal discomfort [None]
  - Headache [None]
  - Neck pain [None]
  - Hypoaesthesia [None]
  - Condition aggravated [None]
  - Vision blurred [None]
  - Insomnia [None]
  - Urinary retention [None]
  - Back pain [None]
  - Urinary tract infection [None]

NARRATIVE: CASE EVENT DATE: 20140916
